FAERS Safety Report 17957480 (Version 1)
Quarter: 2020Q2

REPORT INFORMATION
  Report Type: Spontaneous
  Country: GB (occurrence: GB)
  Receive Date: 20200629
  Receipt Date: 20200629
  Transmission Date: 20200714
  Serious: Yes (Disabling)
  Sender: FDA-Public Use
  Company Number: GB-PFIZER INC-2020245556

PATIENT
  Age: 80 Year
  Sex: Female
  Weight: 49.43 kg

DRUGS (12)
  1. GABAPENTIN. [Suspect]
     Active Substance: GABAPENTIN
     Indication: NEURALGIA
     Dosage: 100 MG, DAILY
     Route: 048
     Dates: start: 20200529
  2. GABAPENTIN. [Suspect]
     Active Substance: GABAPENTIN
     Dosage: ^1 TWICE DAILY^
     Route: 048
  3. BUCCASTEM [Concomitant]
     Active Substance: PROCHLORPERAZINE MALEATE
  4. CARBAMAZEPINE. [Concomitant]
     Active Substance: CARBAMAZEPINE
  5. MACROBID [Concomitant]
     Active Substance: NITROFURANTOIN\NITROFURANTOIN MONOHYDRATE
  6. LEVOTHYROXINE. [Concomitant]
     Active Substance: LEVOTHYROXINE
  7. PARACETAMOL [Concomitant]
     Active Substance: ACETAMINOPHEN
  8. ADIZEM [Concomitant]
     Active Substance: DILTIAZEM HYDROCHLORIDE
  9. BISACODYL. [Concomitant]
     Active Substance: BISACODYL
  10. FUROSEMIDE. [Concomitant]
     Active Substance: FUROSEMIDE
  11. GABAPENTIN. [Suspect]
     Active Substance: GABAPENTIN
     Dosage: ^1 THREE TIMES DAILY^
     Route: 048
  12. RIVAROXABAN [Concomitant]
     Active Substance: RIVAROXABAN

REACTIONS (3)
  - Arthralgia [Not Recovered/Not Resolved]
  - Urinary tract infection [Recovering/Resolving]
  - Insomnia [Unknown]

NARRATIVE: CASE EVENT DATE: 20200531
